FAERS Safety Report 14762253 (Version 1)
Quarter: 2018Q2

REPORT INFORMATION
  Report Type: Spontaneous
  Country: US (occurrence: US)
  Receive Date: 20180416
  Receipt Date: 20180416
  Transmission Date: 20180711
  Serious: No
  Sender: FDA-Public Use
  Company Number: US-BION-006905

PATIENT
  Age: 77 Year
  Sex: Female
  Weight: 52.16 kg

DRUGS (1)
  1. ALEVE [Suspect]
     Active Substance: NAPROXEN SODIUM
     Indication: MIGRAINE

REACTIONS (4)
  - Wrong drug administered [Not Recovered/Not Resolved]
  - Product packaging issue [Unknown]
  - Tachycardia [Recovered/Resolved]
  - Product use in unapproved indication [Not Recovered/Not Resolved]
